FAERS Safety Report 8585507-8 (Version None)
Quarter: 2012Q3

REPORT INFORMATION
  Report Type: 
  Country: None (occurrence: None)
  Receive Date: 20120810
  Receipt Date: 20120806
  Transmission Date: 20120928
  Serious: Yes (Death, Life-Threatening, Hospitalization)
  Sender: FDA-Public Use
  Company Number: CA-TEVA-350581USA

PATIENT
  Sex: Male
  Weight: 106.9 kg

DRUGS (40)
  1. FOLIC ACID [Concomitant]
     Indication: VITAMIN SUPPLEMENTATION
     Dosage: 5 MILLIGRAM DAILY;
     Route: 048
     Dates: start: 20120706
  2. SEPTRA [Concomitant]
     Dosage: 100 ML DAILY;
     Route: 042
     Dates: start: 20120716, end: 20120717
  3. ACYCLOVIR [Concomitant]
     Indication: ANTIVIRAL PROPHYLAXIS
     Dosage: 800 MILLIGRAM DAILY;
     Dates: start: 20101101
  4. BUDESONIDE [Concomitant]
     Indication: COUGH
     Dosage: 2 MILLIGRAM DAILY;
     Route: 048
     Dates: start: 20120703, end: 20120717
  5. RAMIPRIL [Concomitant]
     Indication: HYPERTENSION
     Dosage: 5 MILLIGRAM DAILY;
     Route: 048
     Dates: start: 20111201, end: 20120715
  6. METFORMIN HYDROCHLORIDE [Concomitant]
     Indication: TYPE 2 DIABETES MELLITUS
     Dosage: 500 MILLIGRAM DAILY;
     Route: 048
     Dates: start: 20060101, end: 20120717
  7. POTASSIUM [Concomitant]
  8. INSULIN [Concomitant]
     Dates: end: 20120717
  9. RANITIDINE [Concomitant]
     Indication: DYSPEPSIA
     Dosage: 300 MILLIGRAM DAILY;
     Route: 048
     Dates: start: 20120704, end: 20120717
  10. CODEINE SULFATE [Concomitant]
     Indication: COUGH
     Dosage: 15-30 MG EVERY 4 HOURS AS NEEDED
     Route: 048
     Dates: end: 20120717
  11. HYDROMORPHONE HYDROCHLORIDE [Concomitant]
     Route: 048
     Dates: start: 20120716, end: 20120717
  12. LEVOFLOXACIN [Concomitant]
  13. TREANDA [Suspect]
     Indication: NON-HODGKIN'S LYMPHOMA UNSPECIFIED HISTOLOGY INDOLENT
     Dosage: CYCLE 1
     Route: 042
     Dates: start: 20120706
  14. VITAMIN K TAB [Concomitant]
     Route: 042
     Dates: start: 20120717, end: 20120717
  15. VENTOLIN [Concomitant]
     Dosage: 6-8 PUFFS
     Route: 055
     Dates: start: 20120717
  16. VITAMIN B-12 [Concomitant]
     Indication: VITAMIN SUPPLEMENTATION
     Dosage: 1200 MILLIGRAM DAILY;
     Route: 048
     Dates: start: 20120706
  17. SEPTRA [Concomitant]
     Dosage: 160 MILLIGRAM DAILY;
     Route: 042
     Dates: start: 20120717, end: 20120718
  18. AMOXICILLIN AND CLAVULANATE POTASSIUM [Concomitant]
     Indication: INFECTION PROPHYLAXIS
     Dosage: 1500 MILLIGRAM DAILY;
     Route: 048
  19. SLOW-K [Concomitant]
     Dosage: EVERY 4 HOURS
     Route: 048
     Dates: start: 20120712, end: 20120717
  20. BENADRYL [Concomitant]
     Route: 042
  21. NEUPOGEN [Concomitant]
     Dosage: 480 MICROGRAM DAILY;
     Route: 058
     Dates: start: 20120716
  22. VASOPRESSIN [Concomitant]
  23. HYDROCORTISONE [Concomitant]
     Dosage: 800 MILLIGRAM DAILY;
     Route: 042
     Dates: end: 20120717
  24. PROPOFOL [Concomitant]
     Route: 042
  25. COMBIVENT [Concomitant]
     Indication: COUGH
     Dosage: 10 ML DAILY;
     Route: 048
     Dates: start: 20120704
  26. SEPTRA [Concomitant]
     Dosage: .8571 DOSAGE FORMS DAILY; EVERY MONDAY, WEDNESDAY, FRIDAY
     Route: 048
     Dates: start: 20120718
  27. MORPHINE [Concomitant]
     Dosage: 1 MG TO 5 MG
     Route: 042
     Dates: start: 20120717
  28. LASIX [Concomitant]
     Route: 042
     Dates: start: 20120716, end: 20120716
  29. CALCIUM CHLORIDE [Concomitant]
     Route: 042
     Dates: start: 20120718, end: 20120718
  30. NOREPINEPHRINE [Concomitant]
     Route: 042
     Dates: start: 20120717
  31. PIPERACILLIN AND TAZOBACTAM [Concomitant]
     Dosage: 13.5 GRAM DAILY;
     Route: 042
     Dates: start: 20120712
  32. VORICONAZOLE [Concomitant]
     Indication: ANTIVIRAL PROPHYLAXIS
     Dosage: 800 MILLIGRAM DAILY;
     Route: 048
  33. FENTANYL [Concomitant]
     Dosage: 25-50 MG
     Route: 042
  34. VANCOMYCIN [Concomitant]
     Dosage: 4500 MILLIGRAM DAILY;
  35. ALLOPURINOL [Concomitant]
     Indication: PROPHYLAXIS
     Dosage: 300 MILLIGRAM DAILY;
     Route: 048
     Dates: start: 20120706
  36. SEPTRA [Concomitant]
     Indication: INFECTION PROPHYLAXIS
     Dosage: .8571 DOSAGE FORMS DAILY; EVERY MONDAY, WEDNESDAY, FRIDAY
     Route: 048
     Dates: start: 20120704, end: 20120716
  37. MORPHINE [Concomitant]
     Dates: start: 20120712, end: 20120717
  38. ATROVENT [Concomitant]
     Dosage: 6-8 PUFFS
     Route: 055
     Dates: start: 20120717
  39. HYDROMORPHONE HYDROCHLORIDE [Concomitant]
     Dates: start: 20120716, end: 20120717
  40. MIDAZOLAM [Concomitant]
     Dosage: 1-5 MG
     Route: 042
     Dates: start: 20120717

REACTIONS (1)
  - MULTI-ORGAN FAILURE [None]
